FAERS Safety Report 5549862-5 (Version None)
Quarter: 2007Q4

REPORT INFORMATION
  Report Type: 
  Country: None (occurrence: None)
  Receive Date: 20071129
  Receipt Date: 20070910
  Transmission Date: 20080405
  Serious: Yes (Other)
  Sender: FDA-Public Use
  Company Number: PHEH2007US09976

PATIENT
  Sex: Male

DRUGS (4)
  1. LAMISIL [Suspect]
     Dosage: 250 MG, ORAL
     Route: 048
     Dates: start: 20070528, end: 20070707
  2. LISINOPRIL [Concomitant]
  3. HYDROCHLORZIDE (HYDROCHLOROTHIAZIDE) [Concomitant]
  4. LIPITOR [Concomitant]

REACTIONS (2)
  - AGEUSIA [None]
  - DYSGEUSIA [None]
